FAERS Safety Report 7374282-0 (Version None)
Quarter: 2011Q1

REPORT INFORMATION
  Report Type: 
  Country: None (occurrence: None)
  Receive Date: 20110325
  Receipt Date: 20110315
  Transmission Date: 20110831
  Serious: Yes (Other)
  Sender: FDA-Public Use
  Company Number: KR-JNJFOC-20110203088

PATIENT
  Age: 67 Year
  Sex: Male
  Weight: 52 kg

DRUGS (3)
  1. CEFOPERAZONE SODIUM [Concomitant]
     Route: 065
  2. LEVOFLOXACIN [Suspect]
     Indication: WOUND INFECTION
     Dosage: 4 TIMES
     Route: 042
  3. FUROSEMIDE [Concomitant]
     Route: 065

REACTIONS (4)
  - TORSADE DE POINTES [None]
  - ELECTROCARDIOGRAM T WAVE ABNORMAL [None]
  - ELECTROCARDIOGRAM QT PROLONGED [None]
  - VENTRICULAR TACHYCARDIA [None]
